FAERS Safety Report 4478867-0 (Version None)
Quarter: 2004Q4

REPORT INFORMATION
  Report Type: 
  Country: None (occurrence: None)
  Receive Date: 20041014
  Receipt Date: 20041001
  Transmission Date: 20050328
  Serious: Yes (Hospitalization)
  Sender: FDA-Public Use
  Company Number: HQWYE675830JUL04

PATIENT
  Age: 76 Year
  Sex: Female

DRUGS (11)
  1. CORDARONE [Suspect]
     Indication: ATRIAL FIBRILLATION
     Dosage: 200 MG 2X PER 1 DAY ORAL
     Route: 048
     Dates: start: 20040601, end: 20040609
  2. LAMICTAL [Suspect]
     Indication: EPILEPSY
     Dosage: SEE IMAGE
     Route: 048
     Dates: end: 20040607
  3. LAMICTAL [Suspect]
     Indication: EPILEPSY
     Dosage: SEE IMAGE
     Route: 048
     Dates: start: 20040507
  4. PREVISCAN (FLUINDIONE) [Concomitant]
  5. PREVISCAN (FLUINDIONE) [Concomitant]
  6. AUGMENTIN [Concomitant]
  7. ACETAMINOPHEN [Concomitant]
  8. FORLAX (MACROGOL) [Concomitant]
  9. MORPHINE SULFATE [Concomitant]
  10. ARICEPT [Concomitant]
  11. DIGOXIN [Concomitant]

REACTIONS (6)
  - ABDOMINAL PAIN [None]
  - CYTOLYTIC HEPATITIS [None]
  - HEPATITIS CHOLESTATIC [None]
  - INTERNATIONAL NORMALISED RATIO INCREASED [None]
  - LEUKOCYTOSIS [None]
  - PYREXIA [None]
